FAERS Safety Report 8489059-2 (Version None)
Quarter: 2012Q3

REPORT INFORMATION
  Report Type: 
  Country: None (occurrence: None)
  Receive Date: 20120705
  Receipt Date: 20120626
  Transmission Date: 20120928
  Serious: Yes (Other)
  Sender: FDA-Public Use
  Company Number: US-ASTRAZENECA-2012SE03937

PATIENT
  Age: 48 Year
  Sex: Female
  Weight: 131.5 kg

DRUGS (3)
  1. SEROQUEL XR [Suspect]
     Route: 048
  2. SEROQUEL XR [Suspect]
     Route: 048
  3. SEROQUEL XR [Suspect]
     Indication: SCHIZOAFFECTIVE DISORDER
     Route: 048

REACTIONS (5)
  - DRUG DOSE OMISSION [None]
  - COUGH [None]
  - SUICIDAL IDEATION [None]
  - MALAISE [None]
  - BRONCHITIS [None]
